FAERS Safety Report 26080175 (Version 1)
Quarter: 2025Q4

REPORT INFORMATION
  Report Type: Spontaneous
  Country: CN (occurrence: CN)
  Receive Date: 20251124
  Receipt Date: 20251124
  Transmission Date: 20260118
  Serious: No
  Sender: ALKEM
  Company Number: None

PATIENT
  Age: 31 Year
  Sex: Female

DRUGS (9)
  1. ISONIAZID [Suspect]
     Active Substance: ISONIAZID
     Indication: Disseminated tuberculosis
     Dosage: 0.3 GRAM, QD (EVERY 1 DAY)
     Route: 065
     Dates: start: 201701
  2. LINEZOLID [Suspect]
     Active Substance: LINEZOLID
     Indication: Disseminated tuberculosis
     Dosage: UNK
     Route: 065
     Dates: start: 2017
  3. MOXIFLOXACIN [Suspect]
     Active Substance: MOXIFLOXACIN
     Indication: Disseminated tuberculosis
     Dosage: 0.4 GRAM, QD (EVERY 1 DAY)
     Route: 065
     Dates: start: 201701
  4. ETHAMBUTOL [Suspect]
     Active Substance: ETHAMBUTOL HYDROCHLORIDE
     Indication: Disseminated tuberculosis
     Dosage: 0.75 GRAM, QD (EVERY 1 DAY)
     Route: 065
     Dates: start: 201701
  5. PYRAZINAMIDE [Suspect]
     Active Substance: PYRAZINAMIDE
     Indication: Disseminated tuberculosis
     Dosage: 1.5 G/DAY
     Route: 065
  6. RIFAMPIN [Suspect]
     Active Substance: RIFAMPIN
     Indication: Disseminated tuberculosis
     Dosage: 0.45 G/DAY
     Route: 065
  7. MEROPENEM [Concomitant]
     Active Substance: MEROPENEM
     Indication: Infection prophylaxis
     Dosage: UNK
     Route: 065
     Dates: start: 2017
  8. RIFAPENTINE [Concomitant]
     Active Substance: RIFAPENTINE
     Indication: Disseminated tuberculosis
     Dosage: UNK
     Route: 065
     Dates: start: 2017
  9. RIFAPENTINE [Concomitant]
     Active Substance: RIFAPENTINE
     Dosage: 0.45 GRAM, BIWEEKLY (BIW)
     Route: 065
     Dates: start: 2017

REACTIONS (2)
  - Vomiting [Unknown]
  - Exposure during pregnancy [Unknown]

NARRATIVE: CASE EVENT DATE: 20170101
